FAERS Safety Report 16233432 (Version 1)
Quarter: 2019Q2

REPORT INFORMATION
  Report Type: Report from Study
  Country: EG (occurrence: EG)
  Receive Date: 20190424
  Receipt Date: 20190424
  Transmission Date: 20190711
  Serious: Yes (Other)
  Sender: FDA-Public Use
  Company Number: EG-SA-2019SA107311

PATIENT
  Age: 65 Year
  Sex: Male

DRUGS (3)
  1. ACTRAPID [Concomitant]
     Active Substance: INSULIN HUMAN
     Dosage: 15 IU, QD
  2. CONCOR [Concomitant]
     Active Substance: BISOPROLOL FUMARATE
  3. INSULIN GLARGINE [Suspect]
     Active Substance: INSULIN GLARGINE
     Indication: TYPE 2 DIABETES MELLITUS
     Dosage: 20 IU, QD
     Route: 058
     Dates: start: 20190411

REACTIONS (2)
  - Hyperglycaemia [Recovered/Resolved]
  - Cataract [Not Recovered/Not Resolved]

NARRATIVE: CASE EVENT DATE: 20190411
